FAERS Safety Report 6979693-0 (Version None)
Quarter: 2010Q3

REPORT INFORMATION
  Report Type: 
  Country: None (occurrence: None)
  Receive Date: 20100908
  Receipt Date: 20100825
  Transmission Date: 20110219
  Serious: Yes (Hospitalization)
  Sender: FDA-Public Use
  Company Number: 1000015834

PATIENT
  Age: 69 Year
  Sex: Female

DRUGS (1)
  1. MEMANTINE HCL [Suspect]
     Dosage: 5 MG, ORAL
     Route: 048

REACTIONS (2)
  - CONVULSION [None]
  - ENCEPHALITIS VIRAL [None]
